FAERS Safety Report 19084139 (Version 1)
Quarter: 2021Q2

REPORT INFORMATION
  Report Type: Spontaneous
  Country: RU (occurrence: RU)
  Receive Date: 20210401
  Receipt Date: 20210401
  Transmission Date: 20210717
  Serious: Yes (Other)
  Sender: FDA-Public Use
  Company Number: RU-AMGEN-RUSSP2021047542

PATIENT

DRUGS (1)
  1. PROLIA [Suspect]
     Active Substance: DENOSUMAB
     Indication: OSTEOPOROSIS
     Dosage: UNK
     Route: 065

REACTIONS (7)
  - Clavicle fracture [Unknown]
  - Rib fracture [Unknown]
  - Spinal fracture [Unknown]
  - Radius fracture [Unknown]
  - Sternal fracture [Unknown]
  - Femur fracture [Unknown]
  - Drug ineffective [Unknown]
